FAERS Safety Report 19762164 (Version 1)
Quarter: 2021Q3

REPORT INFORMATION
  Report Type: Spontaneous
  Country: GB (occurrence: GB)
  Receive Date: 20210830
  Receipt Date: 20210830
  Transmission Date: 20211014
  Serious: Yes (Other)
  Sender: FDA-Public Use
  Company Number: GB-GLAXOSMITHKLINE-GBCH2021058573

PATIENT
  Age: 63 Year
  Sex: Female
  Weight: 79.82 kg

DRUGS (4)
  1. ATORVASTATIN CALCIUM. [Concomitant]
     Active Substance: ATORVASTATIN CALCIUM
     Indication: ILL-DEFINED DISORDER
     Dosage: UNK
  2. QUININE BISULFATE [Concomitant]
     Active Substance: QUININE BISULFATE
     Indication: ILL-DEFINED DISORDER
  3. AMLODIPIN [Concomitant]
     Active Substance: AMLODIPINE BESYLATE
     Indication: ILL-DEFINED DISORDER
     Dates: start: 2011
  4. TERBINAFINE. [Suspect]
     Active Substance: TERBINAFINE
     Indication: FUNGAL INFECTION
     Dosage: 250 MG
     Route: 048
     Dates: start: 20210601

REACTIONS (1)
  - Polymorphic light eruption [Recovering/Resolving]

NARRATIVE: CASE EVENT DATE: 20210806
